FAERS Safety Report 4864935-8 (Version None)
Quarter: 2005Q4

REPORT INFORMATION
  Report Type: 
  Country: None (occurrence: None)
  Receive Date: 20051201
  Receipt Date: 20050729
  Transmission Date: 20060501
  Serious: No
  Sender: FDA-Public Use
  Company Number: 2005PV000747

PATIENT
  Age: 58 Year
  Sex: Female
  Weight: 104.3273 kg

DRUGS (9)
  1. BYETTA [Suspect]
     Indication: DIABETES MELLITUS NON-INSULIN-DEPENDENT
     Dosage: SEE IMAGE
     Route: 058
     Dates: start: 20050717, end: 20050718
  2. BYETTA [Suspect]
     Indication: DIABETES MELLITUS NON-INSULIN-DEPENDENT
     Dosage: SEE IMAGE
     Route: 058
     Dates: start: 20050718
  3. HUMALOG [Concomitant]
  4. LANTUS [Concomitant]
  5. PRECOSE [Concomitant]
  6. SYNTHROID [Concomitant]
  7. ATENOLOL [Concomitant]
  8. COZAAR [Concomitant]
  9. LASIX [Concomitant]

REACTIONS (6)
  - BLOOD GLUCOSE INCREASED [None]
  - DIZZINESS [None]
  - DYSPEPSIA [None]
  - ERUCTATION [None]
  - MUSCLE SPASMS [None]
  - NAUSEA [None]
